FAERS Safety Report 9326234 (Version 3)
Quarter: 2013Q3

REPORT INFORMATION
  Report Type: Spontaneous
  Country: ES (occurrence: ES)
  Receive Date: 20130604
  Receipt Date: 20130702
  Transmission Date: 20140515
  Serious: Yes (Hospitalization)
  Sender: FDA-Public Use
  Company Number: ES-JNJFOC-20130515417

PATIENT
  Age: 55 Year
  Sex: Male

DRUGS (2)
  1. INVEGA [Suspect]
     Indication: MENTAL RETARDATION
     Route: 048
  2. INVEGA [Suspect]
     Indication: PSYCHOTIC DISORDER
     Route: 048

REACTIONS (1)
  - Convulsion [Unknown]
